FAERS Safety Report 19231962 (Version 3)
Quarter: 2021Q2

REPORT INFORMATION
  Report Type: Report from Study
  Country: KR (occurrence: KR)
  Receive Date: 20210507
  Receipt Date: 20210527
  Transmission Date: 20210717
  Serious: Yes (Hospitalization)
  Sender: FDA-Public Use
  Company Number: KR-ALXN-A202105085

PATIENT
  Age: 46 Year
  Sex: Male
  Weight: 92 kg

DRUGS (10)
  1. KANARB [Concomitant]
     Indication: HYPERTENSION
     Dosage: 30 MG, QD
     Route: 048
     Dates: start: 20151223
  2. MYREPT [Concomitant]
     Active Substance: MYCOPHENOLATE MOFETIL
     Indication: MYASTHENIA GRAVIS
     Dosage: 1000 MG, BID
     Route: 048
     Dates: start: 20181022
  3. PLACEBO [Suspect]
     Active Substance: UNSPECIFIED INGREDIENT
     Indication: MYASTHENIA GRAVIS
     Dosage: UNK
     Route: 042
     Dates: start: 20200211
  4. PENICILLIN                         /00000901/ [Concomitant]
     Active Substance: PENICILLIN G
     Indication: SKIN INFECTION
     Dosage: 625 MG, TID
     Route: 048
     Dates: start: 20210427, end: 20210428
  5. ITRACONAZOLE. [Concomitant]
     Active Substance: ITRACONAZOLE
     Indication: TINEA PEDIS
     Dosage: 200 MG, QD
     Route: 048
     Dates: start: 20200422
  6. RAVULIZUMAB. [Suspect]
     Active Substance: RAVULIZUMAB
     Indication: MYASTHENIA GRAVIS
     Dosage: 3300 MG, UNK
     Route: 042
     Dates: start: 20210330
  7. SOLONDO [Concomitant]
     Active Substance: PREDNISOLONE
     Indication: MYASTHENIA GRAVIS
     Dosage: 20 MG, QD
     Route: 048
     Dates: start: 20190704
  8. HUROPHEN [Concomitant]
     Indication: SKIN INFECTION
     Dosage: 68.1 MG, TID
     Route: 048
     Dates: start: 20210427, end: 20210428
  9. MOSAPRIDE CITRATE [Concomitant]
     Active Substance: MOSAPRIDE CITRATE
     Indication: TINEA PEDIS
     Dosage: 5 MG, QD
     Route: 048
     Dates: start: 20200422
  10. STREPTOKINASE [Concomitant]
     Active Substance: STREPTOKINASE
     Indication: SKIN INFECTION
     Dosage: 10 MG, TID
     Route: 048
     Dates: start: 20210427, end: 20210428

REACTIONS (1)
  - Meningitis [Recovered/Resolved]

NARRATIVE: CASE EVENT DATE: 20210429
